FAERS Safety Report 7518942-7 (Version None)
Quarter: 2011Q2

REPORT INFORMATION
  Report Type: 
  Country: None (occurrence: None)
  Receive Date: 20110602
  Receipt Date: 20110524
  Transmission Date: 20111010
  Serious: Yes (Other)
  Sender: FDA-Public Use
  Company Number: ES-PFIZER INC-ES-WYE-H12413009

PATIENT
  Age: 29 Year
  Sex: Male
  Weight: 84 kg

DRUGS (7)
  1. MOROCTOCOG ALFA [Suspect]
     Indication: FACTOR VIII DEFICIENCY
     Dosage: 2000.0 IU, 3X/WK
     Route: 042
     Dates: start: 20091001, end: 20091117
  2. MOROCTOCOG ALFA [Suspect]
     Dosage: 2000.0 IU, 3X/WK
     Route: 042
     Dates: start: 20091001, end: 20091117
  3. KALETRA [Concomitant]
     Indication: VIRAL INFECTION
     Dosage: 2 DF, 2X/DAY
     Route: 048
  4. ANAGASTRA [Concomitant]
     Indication: PROPHYLAXIS AGAINST GASTROINTESTINAL ULCER
     Dosage: UNK DOSE 1X/DAY
     Route: 048
  5. ZIAGEN [Concomitant]
     Indication: VIRAL INFECTION
     Dosage: 300 UNK, 2X/DAY
     Route: 048
  6. MOROCTOCOG ALFA [Suspect]
     Dosage: 2000.0 IU, 3X/WK
     Route: 042
     Dates: start: 20091001, end: 20091117
  7. VIREAD [Concomitant]
     Dosage: 245 UNK, 2X/DAY
     Route: 048

REACTIONS (1)
  - FACTOR VIII INHIBITION [None]
